FAERS Safety Report 9188608 (Version 1)
Quarter: 2013Q1

REPORT INFORMATION
  Report Type: Spontaneous
  Country: US (occurrence: US)
  Receive Date: 20130325
  Receipt Date: 20130325
  Transmission Date: 20140127
  Serious: Yes (Other)
  Sender: FDA-Public Use
  Company Number: US-B.I. PHARMACEUTICALS,INC./RIDGEFIELD-2013-BI-07551BP

PATIENT
  Sex: Male
  Weight: 89 kg

DRUGS (9)
  1. SPIRIVA [Suspect]
     Indication: CHRONIC OBSTRUCTIVE PULMONARY DISEASE
     Dosage: 18 MCG
     Route: 055
     Dates: start: 2007
  2. PRAVASTATIN [Concomitant]
     Indication: BLOOD CHOLESTEROL INCREASED
     Dosage: 40 MG
     Route: 048
     Dates: start: 2001
  3. AZOPT [Concomitant]
     Indication: GLAUCOMA
     Dates: start: 2010
  4. SPIRONOLACTONE [Concomitant]
     Indication: BLOOD PRESSURE
     Dosage: 25 MG
     Route: 048
     Dates: start: 2011
  5. ALENDRONATE [Concomitant]
     Indication: OSTEOPENIA
     Route: 048
     Dates: start: 2006
  6. LUMIGAN [Concomitant]
     Indication: GLAUCOMA
     Dates: start: 2000
  7. OMEPRAZOLE [Concomitant]
     Indication: GASTROOESOPHAGEAL REFLUX DISEASE
     Dosage: 40 MG
     Route: 048
     Dates: start: 1998
  8. METOPROLOL [Concomitant]
     Indication: HYPERTENSION
     Dosage: 25 MG
     Route: 048
     Dates: start: 2005
  9. AMLODIPINE [Concomitant]
     Indication: HYPERTENSION
     Dosage: 10 MG
     Route: 048
     Dates: start: 1998

REACTIONS (4)
  - Lung carcinoma cell type unspecified recurrent [Unknown]
  - Pancreatitis [Not Recovered/Not Resolved]
  - Benign prostatic hyperplasia [Not Recovered/Not Resolved]
  - Fluid retention [Not Recovered/Not Resolved]
